FAERS Safety Report 5621436-7 (Version None)
Quarter: 2008Q1

REPORT INFORMATION
  Report Type: 
  Country: None (occurrence: None)
  Receive Date: 20080211
  Receipt Date: 20080110
  Transmission Date: 20080703
  Serious: No
  Sender: FDA-Public Use
  Company Number: US-BAYER-200811226NA

PATIENT
  Age: 27 Year
  Sex: Female
  Weight: 64 kg

DRUGS (1)
  1. YAZ [Suspect]
     Route: 048
     Dates: start: 20071101

REACTIONS (3)
  - MENSTRUATION DELAYED [None]
  - METRORRHAGIA [None]
  - VAGINAL DISCHARGE [None]
